FAERS Safety Report 4292780-3 (Version None)
Quarter: 2004Q1

REPORT INFORMATION
  Report Type: 
  Country: None (occurrence: None)
  Receive Date: 20040210
  Receipt Date: 20040204
  Transmission Date: 20041129
  Serious: Yes (Life-Threatening, Hospitalization)
  Sender: FDA-Public Use
  Company Number: STA-AE-04-MTX-046

PATIENT
  Age: 76 Year
  Sex: Female

DRUGS (5)
  1. RHEUMATREX [Suspect]
     Indication: RHEUMATOID ARTHRITIS
     Dosage: 4 MG 1X PER 1 WK, ORAL
     Route: 048
     Dates: start: 20031001, end: 20031122
  2. LOXONIN (LOXOPROFEN SODIUM) [Concomitant]
  3. PREDNISOLONE [Concomitant]
  4. MUCOSTA (REBAMIPIDE) [Concomitant]
  5. FAMOTIDINE [Concomitant]

REACTIONS (2)
  - BRONCHITIS [None]
  - INTERSTITIAL LUNG DISEASE [None]
